FAERS Safety Report 19152534 (Version 1)
Quarter: 2021Q2

REPORT INFORMATION
  Report Type: Spontaneous
  Country: US (occurrence: US)
  Receive Date: 20210416
  Receipt Date: 20210416
  Transmission Date: 20210717
  Serious: No
  Sender: FDA-Public Use
  Company Number: None

PATIENT
  Age: 50 Year
  Sex: Male
  Weight: 94.95 kg

DRUGS (1)
  1. SUBOXONE [Suspect]
     Active Substance: BUPRENORPHINE HYDROCHLORIDE\NALOXONE HYDROCHLORIDE
     Indication: DRUG DEPENDENCE
     Route: 060
     Dates: start: 20200930, end: 20210317

REACTIONS (5)
  - Pollakiuria [None]
  - Loss of personal independence in daily activities [None]
  - Headache [None]
  - Oral mucosal blistering [None]
  - Abdominal discomfort [None]

NARRATIVE: CASE EVENT DATE: 20210216
